FAERS Safety Report 8581842-8 (Version None)
Quarter: 2012Q3

REPORT INFORMATION
  Report Type: 
  Country: None (occurrence: None)
  Receive Date: 20120809
  Receipt Date: 20120801
  Transmission Date: 20120928
  Serious: Yes (Hospitalization)
  Sender: FDA-Public Use
  Company Number: US-VERTEX PHARMACEUTICALS INC.-AE-2012-011562

PATIENT
  Age: 61 Year
  Sex: Female
  Weight: 88.53 kg

DRUGS (11)
  1. INSULIN-SLIDING SCALE [Concomitant]
     Indication: DIABETES MELLITUS
  2. OMEPRAZOLE [Concomitant]
     Indication: GASTROOESOPHAGEAL REFLUX DISEASE
  3. PEGASYS [Concomitant]
     Dates: start: 20120228
  4. REBETOL [Concomitant]
     Indication: HEPATITIS C
     Dates: start: 20111130
  5. HYDROCHLOROTHIAZIDE [Concomitant]
     Indication: HYPERTENSION
  6. INCIVEK [Suspect]
     Indication: HEPATITIS C
     Route: 048
     Dates: start: 20111130
  7. NI [Concomitant]
     Indication: HYPERTENSION
  8. REBETOL [Concomitant]
     Dates: start: 20120228
  9. ENALAPRIL MALEATE [Concomitant]
     Indication: HYPERTENSION
  10. OXYCODONE HCL [Concomitant]
     Indication: PAIN
  11. PEGASYS [Concomitant]
     Indication: HEPATITIS C
     Dates: start: 20111130

REACTIONS (6)
  - HYPERTENSION [None]
  - PRURITUS [None]
  - DIZZINESS [None]
  - FATIGUE [None]
  - NAUSEA [None]
  - DRUG INTERACTION [None]
